FAERS Safety Report 20782962 (Version 3)
Quarter: 2022Q2

REPORT INFORMATION
  Report Type: Report from Study
  Country: AU (occurrence: AU)
  Receive Date: 20220504
  Receipt Date: 20220527
  Transmission Date: 20220721
  Serious: Yes (Other)
  Sender: FDA-Public Use
  Company Number: AU-BAYER-2022A054879

PATIENT
  Age: 68 Year
  Sex: Female
  Weight: 48.1 kg

DRUGS (4)
  1. REGORAFENIB [Suspect]
     Active Substance: REGORAFENIB
     Indication: Gastrooesophageal cancer recurrent
     Dosage: 90 MG, QD
     Route: 048
     Dates: start: 20220318, end: 20220407
  2. REGORAFENIB [Suspect]
     Active Substance: REGORAFENIB
     Indication: Metastasis
  3. NIVOLUMAB [Suspect]
     Active Substance: NIVOLUMAB
     Indication: Gastrooesophageal cancer recurrent
     Dosage: 240 MG
     Route: 042
     Dates: start: 20220318, end: 20220401
  4. NIVOLUMAB [Suspect]
     Active Substance: NIVOLUMAB
     Indication: Metastasis

REACTIONS (1)
  - Immune-mediated hepatitis [Not Recovered/Not Resolved]

NARRATIVE: CASE EVENT DATE: 20220411
